FAERS Safety Report 5378022-6 (Version None)
Quarter: 2007Q2

REPORT INFORMATION
  Report Type: 
  Country: None (occurrence: None)
  Receive Date: 20070629
  Receipt Date: 20070619
  Transmission Date: 20071010
  Serious: Yes (Hospitalization)
  Sender: FDA-Public Use
  Company Number: 2007SP002155

PATIENT
  Age: 70 Year
  Sex: Male
  Weight: 80.2867 kg

DRUGS (4)
  1. XOPENEX HFA [Suspect]
     Indication: CHRONIC OBSTRUCTIVE PULMONARY DISEASE
     Dosage: PRN; INHALATION
     Route: 055
     Dates: end: 20070604
  2. ATORVASTATIN [Concomitant]
  3. REQUIP [Concomitant]
  4. DOXAZOSIN MESYLATE [Concomitant]

REACTIONS (4)
  - ACUTE CORONARY SYNDROME [None]
  - CORONARY ARTERY DISEASE [None]
  - CORONARY ARTERY OCCLUSION [None]
  - ELECTROCARDIOGRAM ST-T CHANGE [None]
